FAERS Safety Report 5145112-2 (Version None)
Quarter: 2006Q4

REPORT INFORMATION
  Report Type: 
  Country: None (occurrence: None)
  Receive Date: 20061031
  Receipt Date: 20061016
  Transmission Date: 20070319
  Serious: Yes (Other)
  Sender: FDA-Public Use
  Company Number: 2006US-03159

PATIENT
  Age: 16 Year
  Sex: Female

DRUGS (2)
  1. ISOTRETINOIN [Suspect]
     Indication: DRUG USE FOR UNKNOWN INDICATION
     Dosage: 40 MG, QOD; SEE IMAGE
     Dates: start: 20060130, end: 20060210
  2. ISOTRETINOIN [Suspect]
     Indication: DRUG USE FOR UNKNOWN INDICATION
     Dosage: 40 MG, QOD; SEE IMAGE
     Dates: start: 20060130, end: 20060210

REACTIONS (4)
  - DRUG EXPOSURE BEFORE PREGNANCY [None]
  - MIGRAINE [None]
  - NAUSEA [None]
  - PREGNANCY [None]
